FAERS Safety Report 5521041-7 (Version None)
Quarter: 2007Q4

REPORT INFORMATION
  Report Type: 
  Country: None (occurrence: None)
  Receive Date: 20071119
  Receipt Date: 20071113
  Transmission Date: 20080405
  Serious: Yes (Other)
  Sender: FDA-Public Use
  Company Number: US-JNJFOC-20071105263

PATIENT
  Age: 18 Year
  Sex: Female
  Weight: 61.24 kg

DRUGS (3)
  1. MOTRIN IB [Suspect]
  2. MOTRIN IB [Suspect]
     Indication: PAIN
  3. PRENATAL VITAMINS [Concomitant]
     Indication: ROUTINE HEALTH MAINTENANCE

REACTIONS (3)
  - ANAEMIA [None]
  - DYSPNOEA [None]
  - EXPIRED DRUG ADMINISTERED [None]
